FAERS Safety Report 7667597-X (Version None)
Quarter: 2011Q3

REPORT INFORMATION
  Report Type: 
  Country: None (occurrence: None)
  Receive Date: 20110806
  Receipt Date: 20110518
  Transmission Date: 20111222
  Serious: No
  Sender: FDA-Public Use
  Company Number: US-ABBOTT-11P-163-0726425-00

PATIENT
  Sex: Male
  Weight: 81.266 kg

DRUGS (5)
  1. NIASPAN [Suspect]
     Indication: PRODUCT USED FOR UNKNOWN INDICATION
     Dates: start: 20080101
  2. BETAPACE [Concomitant]
     Indication: HEART RATE ABNORMAL
  3. POTASSIUM CITRATE [Concomitant]
     Indication: NEPHROLITHIASIS
  4. TERAZOSIN HCL [Concomitant]
     Indication: BLOOD PRESSURE ABNORMAL
  5. SIMVASTATIN [Concomitant]
     Indication: PRODUCT USED FOR UNKNOWN INDICATION

REACTIONS (1)
  - FLUSHING [None]
